FAERS Safety Report 26143189 (Version 1)
Quarter: 2025Q4

REPORT INFORMATION
  Report Type: Spontaneous
  Country: IN (occurrence: IN)
  Receive Date: 20251211
  Receipt Date: 20251211
  Transmission Date: 20260118
  Serious: Yes (Other)
  Sender: ACCORD
  Company Number: IN-Accord-516956

PATIENT
  Age: 60 Year
  Sex: Male

DRUGS (3)
  1. CARMUSTINE [Suspect]
     Active Substance: CARMUSTINE
     Indication: Bone marrow conditioning regimen
     Dosage: 400 MG/M2 ON DAY -6
     Dates: start: 2025
  2. THIOTEPA [Suspect]
     Active Substance: THIOTEPA
     Indication: Bone marrow conditioning regimen
     Dosage: 5MG/KG ON DAY -5 AND DAY -4
     Dates: start: 2025
  3. PLERIXAFOR [Concomitant]
     Active Substance: PLERIXAFOR
     Dates: start: 20250225

REACTIONS (2)
  - Febrile neutropenia [Unknown]
  - Mucosal inflammation [Unknown]

NARRATIVE: CASE EVENT DATE: 20250101
